FAERS Safety Report 14060790 (Version 1)
Quarter: 2017Q4

REPORT INFORMATION
  Report Type: Spontaneous
  Country: US (occurrence: US)
  Receive Date: 20171009
  Receipt Date: 20171009
  Transmission Date: 20180321
  Serious: Yes (Other)
  Sender: FDA-Public Use
  Company Number: US-BAYER-2017-187733

PATIENT
  Age: 57 Year
  Sex: Female

DRUGS (3)
  1. GADAVIST [Suspect]
     Active Substance: GADOBUTROL
     Indication: SCAN WITH CONTRAST
     Dosage: 7.5 ML, ONCE
     Dates: start: 20170926, end: 20170926
  2. DIPHENHYDRAMINE. [Concomitant]
     Active Substance: DIPHENHYDRAMINE
     Indication: CONTRAST MEDIA ALLERGY
     Dosage: 50 MG, UNK
     Route: 048
     Dates: start: 20170926
  3. PREDNISONE. [Concomitant]
     Active Substance: PREDNISONE
     Indication: CONTRAST MEDIA ALLERGY
     Dosage: 50 MG, UNK
     Route: 048
     Dates: start: 20170926

REACTIONS (2)
  - Urticaria [Unknown]
  - Dysphonia [Unknown]

NARRATIVE: CASE EVENT DATE: 20170926
